FAERS Safety Report 14163934 (Version 1)
Quarter: 2017Q4

REPORT INFORMATION
  Report Type: Spontaneous
  Country: US (occurrence: US)
  Receive Date: 20171107
  Receipt Date: 20171107
  Transmission Date: 20180321
  Serious: No
  Sender: FDA-Public Use
  Company Number: US-TEVA-759761ACC

PATIENT
  Sex: Male

DRUGS (2)
  1. METHYLPREDNISOLONE. [Suspect]
     Active Substance: METHYLPREDNISOLONE
     Dates: start: 20170404, end: 20170405
  2. ZITHROMAX [Interacting]
     Active Substance: AZITHROMYCIN DIHYDRATE

REACTIONS (4)
  - Vomiting [Unknown]
  - Drug interaction [Unknown]
  - Dizziness [Not Recovered/Not Resolved]
  - Nausea [Not Recovered/Not Resolved]
